FAERS Safety Report 4394386-4 (Version None)
Quarter: 2004Q3

REPORT INFORMATION
  Report Type: 
  Country: None (occurrence: None)
  Receive Date: 20040707
  Receipt Date: 20040625
  Transmission Date: 20050211
  Serious: Yes (Other)
  Sender: FDA-Public Use
  Company Number: 2004042860

PATIENT
  Sex: Female
  Weight: 68.0396 kg

DRUGS (2)
  1. NEURONTIN [Suspect]
     Indication: PAIN IN EXTREMITY
     Dosage: 100 MG (100 MG, DAILY)
     Dates: start: 20010101
  2. INTERFERON BETA (INTERFERON BETA) [Suspect]
     Indication: ILL-DEFINED DISORDER

REACTIONS (6)
  - ABNORMAL BEHAVIOUR [None]
  - DRUG INEFFECTIVE [None]
  - HALLUCINATIONS, MIXED [None]
  - NIGHTMARE [None]
  - SUICIDAL IDEATION [None]
  - TEARFULNESS [None]
